FAERS Safety Report 5980316-8 (Version None)
Quarter: 2008Q4

REPORT INFORMATION
  Report Type: 
  Country: None (occurrence: None)
  Receive Date: 20081126
  Receipt Date: 20080929
  Transmission Date: 20090506
  Serious: Yes (Hospitalization)
  Sender: FDA-Public Use
  Company Number: 2008BH010256

PATIENT
  Sex: Male

DRUGS (13)
  1. DIANEAL [Suspect]
     Indication: RENAL FAILURE CHRONIC
     Dosage: 9 L;EVERY DAY;IP
     Route: 033
     Dates: start: 20070701
  2. BLOOD PRESSURE MED [Concomitant]
  3. RENAL MULTIVITAMIN [Concomitant]
  4. VITAMIN B6 [Concomitant]
  5. INHALER [Concomitant]
  6. DIGOXIN [Concomitant]
  7. FOLIC ACID [Concomitant]
  8. LIPITOR [Concomitant]
  9. COUMADIN [Concomitant]
  10. PHOSLO [Concomitant]
  11. PROCRIT [Concomitant]
  12. POTASSIUM CHLORIDE [Concomitant]
  13. ZEMPLAR [Concomitant]

REACTIONS (1)
  - PERITONITIS BACTERIAL [None]
